FAERS Safety Report 4551252-9 (Version None)
Quarter: 2005Q1

REPORT INFORMATION
  Report Type: 
  Country: None (occurrence: None)
  Receive Date: 20050106
  Receipt Date: 20041220
  Transmission Date: 20050727
  Serious: Yes (Hospitalization)
  Sender: FDA-Public Use
  Company Number: EWC041241947

PATIENT
  Age: 79 Year
  Sex: Female
  Weight: 72 kg

DRUGS (10)
  1. HUMATROPE [Suspect]
     Indication: GROWTH HORMONE DEFICIENCY
     Dosage: 0.2 MG
     Dates: start: 19980626
  2. DIGOXIN [Concomitant]
  3. HYDROCORTISONE [Concomitant]
  4. THYROXINE (LEVOTHYROXINE SODIUM) [Concomitant]
  5. AMARYL [Concomitant]
  6. ARAVA [Concomitant]
  7. EFFEXOR [Concomitant]
  8. LASIX [Concomitant]
  9. SEREVENT [Concomitant]
  10. FLIXOTIDE (FLUTICASONE PROPIONATE) [Concomitant]

REACTIONS (2)
  - ATRIAL FIBRILLATION [None]
  - PNEUMONIA [None]
